FAERS Safety Report 22352521 (Version 1)
Quarter: 2023Q2

REPORT INFORMATION
  Report Type: Spontaneous
  Country: FR (occurrence: FR)
  Receive Date: 20230522
  Receipt Date: 20230522
  Transmission Date: 20230722
  Serious: Yes (Hospitalization, Other)
  Sender: FDA-Public Use
  Company Number: FR-BRISTOL-MYERS SQUIBB COMPANY-2023-072123

PATIENT
  Age: 71 Year
  Sex: Male

DRUGS (2)
  1. PACLITAXEL [Interacting]
     Active Substance: PACLITAXEL
     Indication: Adenocarcinoma pancreas
     Dates: start: 201906, end: 202001
  2. GEMCITABINE [Interacting]
     Active Substance: GEMCITABINE
     Indication: Adenocarcinoma pancreas
     Dosage: DISCONTINUED DURING 9TH CYCLE
     Dates: start: 201906, end: 202003

REACTIONS (4)
  - Thrombotic microangiopathy [Unknown]
  - Drug interaction [Unknown]
  - Off label use [Unknown]
  - Neurotoxicity [Unknown]
